FAERS Safety Report 10038762 (Version 1)
Quarter: 2014Q1

REPORT INFORMATION
  Report Type: Report from Study
  Country: US (occurrence: US)
  Receive Date: 20140326
  Receipt Date: 20140326
  Transmission Date: 20141002
  Serious: Yes (Life-Threatening, Hospitalization)
  Sender: FDA-Public Use
  Company Number: US-SA-2014SA036179

PATIENT
  Age: 57 Year
  Sex: Male
  Weight: 79 kg

DRUGS (5)
  1. ELOXATIN [Suspect]
     Indication: ADENOCARCINOMA OF COLON
     Route: 042
     Dates: start: 20111213
  2. BLINDED THERAPY [Suspect]
     Indication: ADENOCARCINOMA OF COLON
     Route: 065
     Dates: start: 20111213, end: 20120124
  3. FLUOROURACIL [Concomitant]
     Dosage: ROUTE:INTRAVENOUS PUSH (IVP) ON DAY 1
     Dates: start: 20111213
  4. FLUOROURACIL [Concomitant]
     Dosage: OVER 46-48 HOURS ON DAY 1;?TOTAL DOSE ADMINISTERED THIS COURSE WAS 5200 MG.
     Route: 042
  5. LEUCOVORIN [Concomitant]
     Dosage: OVER 2 HOURS ON DAY 1, TOTAL DOSE ADMINISTERED THIS COURSE WAS 800 MG
     Route: 042
     Dates: start: 20111213

REACTIONS (1)
  - Cerebrovascular accident [Recovering/Resolving]
